FAERS Safety Report 6434401-7 (Version None)
Quarter: 2009Q4

REPORT INFORMATION
  Report Type: 
  Country: None (occurrence: None)
  Receive Date: 20091110
  Receipt Date: 20080603
  Transmission Date: 20100525
  Serious: No
  Sender: FDA-Public Use
  Company Number: US-ASTRAZENECA-2008UW11512

PATIENT
  Sex: Female

DRUGS (4)
  1. PRILOSEC OTC [Suspect]
     Route: 048
     Dates: start: 20070101
  2. PRILOSEC OTC [Interacting]
     Dosage: TOOK RX PRILOSEC SEVERAL YEARS AGO
     Route: 048
  3. PROGESTERONE [Interacting]
     Indication: CONTRACEPTION
  4. VARIOUS OTCS [Concomitant]

REACTIONS (3)
  - DRUG EXPOSURE DURING PREGNANCY [None]
  - DRUG INTERACTION [None]
  - METRORRHAGIA [None]
